FAERS Safety Report 13935283 (Version 2)
Quarter: 2017Q4

REPORT INFORMATION
  Report Type: Report from Study
  Country: JP (occurrence: JP)
  Receive Date: 20170905
  Receipt Date: 20171010
  Transmission Date: 20180320
  Serious: Yes (Death, Other)
  Sender: FDA-Public Use
  Company Number: JP-ASTELLAS-2016JP019131

PATIENT
  Age: 80 Year
  Sex: Male
  Weight: 59 kg

DRUGS (3)
  1. PREDNISOLONE. [Concomitant]
     Active Substance: PREDNISOLONE
     Indication: HORMONE-REFRACTORY PROSTATE CANCER
     Route: 048
     Dates: end: 20170501
  2. ZOSYN [Concomitant]
     Active Substance: PIPERACILLIN SODIUM\TAZOBACTAM SODIUM
     Indication: PLASMA CELL MYELOMA
     Route: 065
     Dates: start: 20170422, end: 20170428
  3. ENZALUTAMIDE [Suspect]
     Active Substance: ENZALUTAMIDE
     Indication: HORMONE-REFRACTORY PROSTATE CANCER
     Route: 048
     Dates: start: 20150615, end: 20170501

REACTIONS (2)
  - Plasma cell myeloma [Fatal]
  - Intentional underdose [Unknown]

NARRATIVE: CASE EVENT DATE: 20150615
